FAERS Safety Report 9812222 (Version 2)
Quarter: 2016Q2

REPORT INFORMATION
  Report Type: Report from Study
  Country: US (occurrence: US)
  Receive Date: 20140112
  Receipt Date: 20160502
  Transmission Date: 20160815
  Serious: Yes (Death)
  Sender: FDA-Public Use
  Company Number: US-ROCHE-1332333

PATIENT
  Age: 64 Year
  Sex: Female

DRUGS (15)
  1. CYCLOPHOSPHAMIDE. [Concomitant]
     Active Substance: CYCLOPHOSPHAMIDE
     Dosage: PER 60 ML,
     Route: 042
     Dates: start: 20130215
  2. PREDNISONE. [Concomitant]
     Active Substance: PREDNISONE
  3. FOSAPREPITANT [Concomitant]
     Active Substance: FOSAPREPITANT
     Dosage: PER 5 ML
     Route: 042
     Dates: start: 20130215
  4. RITUXAN [Suspect]
     Active Substance: RITUXIMAB
     Indication: NON-HODGKIN^S LYMPHOMA
  5. ONDANSETRON [Concomitant]
     Active Substance: ONDANSETRON
     Route: 042
     Dates: start: 20130215
  6. FAMOTIDINE. [Concomitant]
     Active Substance: FAMOTIDINE
     Route: 042
  7. DOXORUBICIN [Concomitant]
     Active Substance: DOXORUBICIN
     Dosage: PER 40ML
     Route: 042
     Dates: start: 20130215
  8. SODIUM CHLORIDE. [Concomitant]
     Active Substance: SODIUM CHLORIDE
     Dosage: USED TO FLUSH BETWEEN MEDICATIONS
     Route: 042
     Dates: start: 20130308
  9. DIPHENHYDRAMINE. [Concomitant]
     Active Substance: DIPHENHYDRAMINE
     Dosage: PER ML
     Route: 042
     Dates: start: 20130329
  10. RITUXAN [Suspect]
     Active Substance: RITUXIMAB
     Indication: LYMPHOMA
     Dosage: PER 60 ML ONCE, NEXT DOSES RECEIVED ON ON 28/JAN/2013, 15/FEB/2013, 08/MAR/2013, 29/MAR/2013, 19/APR
     Route: 042
     Dates: start: 20130121
  11. ONDANSETRON [Concomitant]
     Active Substance: ONDANSETRON
     Route: 042
     Dates: start: 20130308
  12. VINCRISTINE [Concomitant]
     Active Substance: VINCRISTINE
     Dosage: PER 2 ML
     Route: 042
     Dates: start: 20130215
  13. DIPHENHYDRAMINE. [Concomitant]
     Active Substance: DIPHENHYDRAMINE
     Route: 042
     Dates: start: 20130128
  14. DEXAMETHASONE SODIUM PHOSPHATE. [Concomitant]
     Active Substance: DEXAMETHASONE SODIUM PHOSPHATE
     Route: 042
     Dates: start: 20130215
  15. SODIUM CHLORIDE. [Concomitant]
     Active Substance: SODIUM CHLORIDE
     Route: 042
     Dates: start: 20130215

REACTIONS (2)
  - Seizure [Fatal]
  - Central nervous system lymphoma [Fatal]

NARRATIVE: CASE EVENT DATE: 201307
